FAERS Safety Report 22014053 (Version 1)
Quarter: 2023Q1

REPORT INFORMATION
  Report Type: Other
  Country: CN (occurrence: None)
  Receive Date: 20230221
  Receipt Date: 20230221
  Transmission Date: 20230417
  Serious: Yes (Other)
  Sender: FDA-Public Use
  Company Number: CN-ROCHE-3290453

PATIENT

DRUGS (3)
  1. RITUXIMAB [Suspect]
     Active Substance: RITUXIMAB
     Indication: Lymphoma
     Dosage: 2 WEEKS AS A COURSE OF TREATMENT
     Route: 041
  2. GEMCITABINE HYDROCHLORIDE [Suspect]
     Active Substance: GEMCITABINE HYDROCHLORIDE
     Indication: Lymphoma
     Dosage: ACCORDING TO BODY SURFACE AREA, AND THE DRUGS WERE MIXED IN 100 ML 0.9% SODIUM CHLORIDE INJECTION BY
     Route: 041
  3. OXALIPLATIN [Suspect]
     Active Substance: OXALIPLATIN
     Indication: Lymphoma
     Dosage: FUSED WITH 500 ML GLUCOSE INJECTION BY INTRAVENOUS DRIP FOR 3 HOURS.
     Route: 041

REACTIONS (1)
  - Myelosuppression [Unknown]
